FAERS Safety Report 6790949-7 (Version None)
Quarter: 2010Q2

REPORT INFORMATION
  Report Type: 
  Country: None (occurrence: None)
  Receive Date: 20100623
  Receipt Date: 20100623
  Transmission Date: 20101027
  Serious: Yes (Life-Threatening, Hospitalization)
  Sender: FDA-Public Use
  Company Number: None

PATIENT
  Sex: Male

DRUGS (1)
  1. PHENYTOIN [Suspect]
     Dates: start: 20090820

REACTIONS (3)
  - LIP SWELLING [None]
  - PHARYNGEAL OEDEMA [None]
  - RASH [None]
